FAERS Safety Report 15408557 (Version 1)
Quarter: 2018Q3

REPORT INFORMATION
  Report Type: Report from Study
  Country: IT (occurrence: IT)
  Receive Date: 20180920
  Receipt Date: 20180920
  Transmission Date: 20181010
  Serious: Yes (Hospitalization)
  Sender: FDA-Public Use
  Company Number: IT-TEVA-2018-IT-956633

PATIENT
  Age: 84 Year
  Sex: Male

DRUGS (11)
  1. CLEXANE [Suspect]
     Active Substance: ENOXAPARIN SODIUM
     Route: 065
  2. GABAPENTIN. [Concomitant]
     Active Substance: GABAPENTIN
  3. TAMSULOSIN HYDROCHLORIDE. [Concomitant]
     Active Substance: TAMSULOSIN HYDROCHLORIDE
  4. AVODART [Concomitant]
     Active Substance: DUTASTERIDE
  5. AMIODARONE [Concomitant]
     Active Substance: AMIODARONE
  6. SPIRIVA 18 MICROGRAMMI, POLVERE PER INALAZIONE, CAPSULA RIGIDA [Concomitant]
  7. CARDIOASPIRIN 100 MG COMPRESSE GASTRORESISTENTI [Suspect]
     Active Substance: ASPIRIN
  8. RANEXA [Concomitant]
     Active Substance: RANOLAZINE
  9. CARDIRENE 160 MG POLVERE PER SOLUZIONE ORALE [Concomitant]
     Active Substance: ASPIRIN DL-LYSINE
  10. INSULIN [Concomitant]
     Active Substance: INSULIN NOS
  11. METFORMIN [Suspect]
     Active Substance: METFORMIN HYDROCHLORIDE
     Indication: DIABETES MELLITUS
     Route: 065

REACTIONS (4)
  - Lactic acidosis [Recovering/Resolving]
  - Haematemesis [Recovering/Resolving]
  - Abdominal pain [Recovering/Resolving]
  - Ulcer haemorrhage [Recovering/Resolving]

NARRATIVE: CASE EVENT DATE: 20180612
